APPROVED DRUG PRODUCT: NITROPRESS
Active Ingredient: SODIUM NITROPRUSSIDE
Strength: 50MG/VIAL
Dosage Form/Route: INJECTABLE;INJECTION
Application: A070566 | Product #001
Applicant: HOSPIRA INC
Approved: Jun 9, 1986 | RLD: No | RS: No | Type: DISCN